FAERS Safety Report 5821669-0 (Version None)
Quarter: 2008Q3

REPORT INFORMATION
  Report Type: 
  Country: None (occurrence: None)
  Receive Date: 20080714
  Receipt Date: 20071109
  Transmission Date: 20090109
  Serious: Yes (Disabling)
  Sender: FDA-Public Use
  Company Number: 531142

PATIENT
  Age: 62 Year
  Sex: Female
  Weight: 50.3 kg

DRUGS (1)
  1. BONIVA [Suspect]
     Indication: OSTEOPOROSIS
     Dosage: ORAL
     Route: 048
     Dates: start: 20070829, end: 20070902

REACTIONS (2)
  - BONE PAIN [None]
  - CHEST PAIN [None]
